FAERS Safety Report 6257511-6 (Version None)
Quarter: 2009Q3

REPORT INFORMATION
  Report Type: 
  Country: None (occurrence: None)
  Receive Date: 20090706
  Receipt Date: 20090624
  Transmission Date: 20100115
  Serious: Yes (Hospitalization)
  Sender: FDA-Public Use
  Company Number: JP-ASTRAZENECA-2009SE03401

PATIENT
  Sex: Male

DRUGS (1)
  1. OMEPRAL [Suspect]
     Dosage: DOSE UNKNOWN
     Route: 048

REACTIONS (1)
  - DELIRIUM [None]
